FAERS Safety Report 9503864 (Version 1)
Quarter: 2013Q3

REPORT INFORMATION
  Report Type: Spontaneous
  Country: US (occurrence: None)
  Receive Date: 20130905
  Receipt Date: 20130905
  Transmission Date: 20140515
  Serious: Yes (Life-Threatening, Disabling, Other)
  Sender: FDA-Public Use
  Company Number: None

PATIENT
  Age: 23 Year
  Sex: Female
  Weight: 58.97 kg

DRUGS (1)
  1. ACCUTANE [Suspect]
     Indication: ACNE
     Dosage: 1 PILL   ONCE DAILY  TAKEN BY MOUTH
     Route: 048
     Dates: start: 20130713, end: 20130718

REACTIONS (12)
  - Depressive symptom [None]
  - Crying [None]
  - Cognitive disorder [None]
  - Flushing [None]
  - Alopecia [None]
  - Suicidal ideation [None]
  - Affect lability [None]
  - Panic attack [None]
  - Mental disorder [None]
  - Screaming [None]
  - Skin atrophy [None]
  - Pain [None]
